FAERS Safety Report 26181392 (Version 1)
Quarter: 2025Q4

REPORT INFORMATION
  Report Type: Spontaneous
  Country: EU (occurrence: EU)
  Receive Date: 20251221
  Receipt Date: 20251221
  Transmission Date: 20260117
  Serious: Yes (Hospitalization)
  Sender: JOHNSON AND JOHNSON
  Company Number: None

PATIENT
  Age: 59 Year
  Sex: Male
  Weight: 80 kg

DRUGS (3)
  1. VELCADE [Suspect]
     Active Substance: BORTEZOMIB
     Indication: Castleman^s disease
     Dosage: 1 VIAL SEMANAL
     Route: 058
     Dates: start: 20230618, end: 20240831
  2. DARZALEX [Suspect]
     Active Substance: DARATUMUMAB
     Indication: Castleman^s disease
     Dosage: 1 VIAL SEMANAL
     Route: 058
     Dates: start: 20230618, end: 20240831
  3. DEXAMETHASONE [Concomitant]
     Active Substance: DEXAMETHASONE
     Indication: Castleman^s disease
     Dosage: 20MG SEMANAL
     Route: 048
     Dates: start: 20230618, end: 20240831

REACTIONS (2)
  - Gastroenteritis Escherichia coli [Recovered/Resolved]
  - Intestinal sepsis [Recovered/Resolved]

NARRATIVE: CASE EVENT DATE: 20240831
